FAERS Safety Report 14569167 (Version 1)
Quarter: 2018Q1

REPORT INFORMATION
  Report Type: Spontaneous
  Country: US (occurrence: US)
  Receive Date: 20180223
  Receipt Date: 20180223
  Transmission Date: 20180509
  Serious: Yes (Other)
  Sender: FDA-Public Use
  Company Number: None

PATIENT
  Age: 7 Year
  Sex: Male
  Weight: 22.2 kg

DRUGS (6)
  1. ACYCLOVIR IV [Concomitant]
     Dates: start: 20171230, end: 20171230
  2. VANCOMYCIN [Suspect]
     Active Substance: VANCOMYCIN
     Indication: INFECTION
     Route: 042
     Dates: start: 20171230, end: 20171230
  3. DOPAMINE [Concomitant]
     Active Substance: DOPAMINE\DOPAMINE HYDROCHLORIDE
     Dates: start: 20171229, end: 20171229
  4. CEFTRIAXONE. [Concomitant]
     Active Substance: CEFTRIAXONE
     Dates: start: 20171230, end: 20171231
  5. MIDAZOLAM [Concomitant]
     Active Substance: MIDAZOLAM HYDROCHLORIDE
     Dates: start: 20171229, end: 20171230
  6. MORPHINE [Concomitant]
     Active Substance: MORPHINE
     Dates: start: 20171229, end: 20171230

REACTIONS (1)
  - Epilepsy [None]

NARRATIVE: CASE EVENT DATE: 20171230
